FAERS Safety Report 6264512-0 (Version None)
Quarter: 2009Q3

REPORT INFORMATION
  Report Type: 
  Country: None (occurrence: None)
  Receive Date: 20090710
  Receipt Date: 20090630
  Transmission Date: 20100115
  Serious: No
  Sender: FDA-Public Use
  Company Number: JP-ABBOTT-09P-087-0579336-00

PATIENT
  Sex: Female
  Weight: 15 kg

DRUGS (8)
  1. CEFZON FINE GRANULE [Suspect]
     Indication: OTITIS MEDIA ACUTE
     Route: 048
     Dates: start: 20090427, end: 20090430
  2. CALONAL [Suspect]
     Indication: OTITIS MEDIA ACUTE
     Route: 048
     Dates: start: 20090427, end: 20090430
  3. LAC B [Suspect]
     Indication: DRUG USE FOR UNKNOWN INDICATION
     Dates: start: 20090427, end: 20090430
  4. LACTOSE [Concomitant]
     Indication: DRUG USE FOR UNKNOWN INDICATION
     Route: 048
     Dates: start: 20090427
  5. MUCODYNE-DS [Concomitant]
     Indication: DRUG USE FOR UNKNOWN INDICATION
     Dates: start: 20090427
  6. ASVERIN [Concomitant]
     Indication: DRUG USE FOR UNKNOWN INDICATION
     Dates: start: 20090427
  7. BESTRON [Concomitant]
     Indication: DRUG USE FOR UNKNOWN INDICATION
     Dates: start: 20090427, end: 20090504
  8. TOWK [Concomitant]
     Indication: DRUG USE FOR UNKNOWN INDICATION
     Dates: start: 20090427, end: 20090430

REACTIONS (1)
  - POLLAKIURIA [None]
